FAERS Safety Report 14740834 (Version 2)
Quarter: 2018Q2

REPORT INFORMATION
  Report Type: Report from Study
  Country: None (occurrence: IT)
  Receive Date: 20180410
  Receipt Date: 20180507
  Transmission Date: 20180711
  Serious: Yes (Death, Hospitalization)
  Sender: FDA-Public Use
  Company Number: IT-ABBVIE-18K-083-2315981-00

PATIENT
  Age: 55 Year
  Sex: Female

DRUGS (1)
  1. DUODOPA [Suspect]
     Active Substance: CARBIDOPA\LEVODOPA
     Indication: PARKINSON^S DISEASE
     Dosage: MD 7+3??CR 2,3??ED 2,2
     Route: 050
     Dates: start: 20110919, end: 20180428

REACTIONS (3)
  - Fall [Unknown]
  - Femur fracture [Unknown]
  - Femur fracture [Fatal]

NARRATIVE: CASE EVENT DATE: 201804
